FAERS Safety Report 18745720 (Version 1)
Quarter: 2021Q1

REPORT INFORMATION
  Report Type: Spontaneous
  Country: US (occurrence: US)
  Receive Date: 20210115
  Receipt Date: 20210115
  Transmission Date: 20210419
  Serious: Yes (Other)
  Sender: FDA-Public Use
  Company Number: US-SUN PHARMACEUTICAL INDUSTRIES LTD-2020R1-275751

PATIENT
  Age: 24 Year
  Sex: Female

DRUGS (1)
  1. VALPROIC ACID. [Suspect]
     Active Substance: VALPROIC ACID
     Indication: SEIZURE
     Dosage: 100 TABLETS (100 MG EACH)
     Route: 048

REACTIONS (8)
  - Metabolic acidosis [Recovering/Resolving]
  - Overdose [Recovering/Resolving]
  - Hypernatraemia [Recovering/Resolving]
  - Incoherent [Recovering/Resolving]
  - Hyperammonaemia [Recovering/Resolving]
  - Encephalopathy [Recovering/Resolving]
  - Osmolar gap [Recovering/Resolving]
  - Suicide attempt [Unknown]
